FAERS Safety Report 17581661 (Version 1)
Quarter: 2020Q1

REPORT INFORMATION
  Report Type: Spontaneous
  Country: HK (occurrence: HK)
  Receive Date: 20200325
  Receipt Date: 20200325
  Transmission Date: 20200409
  Serious: Yes (Life-Threatening, Hospitalization)
  Sender: FDA-Public Use
  Company Number: HK-TAKEDA-2020TUS015656

PATIENT
  Age: 73 Year
  Sex: Male
  Weight: 53 kg

DRUGS (3)
  1. MELPHALAN. [Suspect]
     Active Substance: MELPHALAN
     Indication: PLASMA CELL MYELOMA
     Dosage: 12 MILLIGRAM
     Route: 048
     Dates: start: 20191119, end: 20200208
  2. DEXAMETHASONE. [Suspect]
     Active Substance: DEXAMETHASONE
     Indication: PLASMA CELL MYELOMA
     Dosage: 20 MILLIGRAM
     Route: 042
     Dates: start: 20191118, end: 20191118
  3. BORTEZOMIB. [Suspect]
     Active Substance: BORTEZOMIB
     Indication: PLASMA CELL MYELOMA
     Dosage: 1.8 MILLIGRAM
     Route: 058
     Dates: start: 20191119, end: 20200212

REACTIONS (1)
  - Fluid overload [Not Recovered/Not Resolved]

NARRATIVE: CASE EVENT DATE: 20200219
